FAERS Safety Report 24877526 (Version 1)
Quarter: 2025Q1

REPORT INFORMATION
  Report Type: Spontaneous
  Country: US (occurrence: US)
  Receive Date: 20250123
  Receipt Date: 20250123
  Transmission Date: 20250409
  Serious: Yes (Death, Hospitalization, Other)
  Sender: PACIRA
  Company Number: US-ORG100016242-2025000013

PATIENT

DRUGS (4)
  1. EXPAREL [Suspect]
     Active Substance: BUPIVACAINE
     Indication: Local anaesthesia
     Route: 065
  2. BUPIVACAINE [Suspect]
     Active Substance: BUPIVACAINE
     Indication: Local anaesthesia
     Route: 065
  3. PROPOFOL [Concomitant]
     Active Substance: PROPOFOL
     Indication: Sedation
     Route: 042
  4. KETAMINE [Concomitant]
     Active Substance: KETAMINE
     Indication: Sedation
     Route: 042

REACTIONS (8)
  - Death [Fatal]
  - Pneumonia [Unknown]
  - Deep vein thrombosis [Unknown]
  - Procedural pain [Unknown]
  - Arrhythmia [Unknown]
  - Pseudarthrosis [Unknown]
  - Peroneal nerve palsy [Unknown]
  - Urinary retention postoperative [Unknown]
